FAERS Safety Report 7337667-4 (Version None)
Quarter: 2011Q1

REPORT INFORMATION
  Report Type: 
  Country: None (occurrence: None)
  Receive Date: 20110308
  Receipt Date: 20110209
  Transmission Date: 20110831
  Serious: No
  Sender: FDA-Public Use
  Company Number: US-B.I. PHARMACEUTICALS,INC./RIDGEFIELD-2010-BP-13916BP

PATIENT
  Sex: Male

DRUGS (11)
  1. PRADAXA [Suspect]
     Indication: CEREBROVASCULAR ACCIDENT PROPHYLAXIS
  2. TOPROL-XL [Concomitant]
     Indication: HYPERTENSION
  3. MAVIK [Concomitant]
     Indication: HYPERTENSION
  4. ASA [Concomitant]
     Dosage: 81 MG
  5. PRADAXA [Suspect]
     Indication: ATRIAL FIBRILLATION
     Dosage: 300 MG
     Route: 048
     Dates: start: 20101124
  6. PRADAXA [Suspect]
     Indication: ANTICOAGULANT THERAPY
  7. LOVAZA [Concomitant]
  8. OCUVITE WITH LUTEIN [Concomitant]
  9. TRILIPIX [Concomitant]
     Indication: BLOOD CHOLESTEROL
     Dosage: 135 MG
  10. ZETIA [Concomitant]
     Indication: BLOOD CHOLESTEROL INCREASED
     Dosage: 10 MG
  11. CALCIUM  + D [Concomitant]

REACTIONS (2)
  - CONSTIPATION [None]
  - DRY MOUTH [None]
